FAERS Safety Report 5818531-6 (Version None)
Quarter: 2008Q3

REPORT INFORMATION
  Report Type: 
  Country: None (occurrence: None)
  Receive Date: 20080717
  Receipt Date: 20080708
  Transmission Date: 20090109
  Serious: Yes (Other)
  Sender: FDA-Public Use
  Company Number: 2008SP014190

PATIENT
  Age: 63 Year
  Sex: Male

DRUGS (1)
  1. MIRALAX [Suspect]
     Dosage: 17 GM, QD; PO
     Route: 048
     Dates: start: 20080621, end: 20080705

REACTIONS (1)
  - WEIGHT INCREASED [None]
